FAERS Safety Report 20162886 (Version 6)
Quarter: 2022Q1

REPORT INFORMATION
  Report Type: Report from Study
  Country: US (occurrence: US)
  Receive Date: 20211209
  Receipt Date: 20220109
  Transmission Date: 20220423
  Serious: Yes (Hospitalization, Other)
  Sender: FDA-Public Use
  Company Number: US-ABBVIE-21K-163-4186890-00

PATIENT
  Sex: Female
  Weight: 63.560 kg

DRUGS (19)
  1. DUOPA [Suspect]
     Active Substance: CARBIDOPA\LEVODOPA
     Indication: Product used for unknown indication
     Route: 050
     Dates: start: 20151214
  2. DUOPA [Suspect]
     Active Substance: CARBIDOPA\LEVODOPA
  3. OMEPRAZOLE [Concomitant]
     Active Substance: OMEPRAZOLE
     Indication: Product used for unknown indication
     Dosage: 40MG
     Route: 048
  4. SINEMET [Concomitant]
     Active Substance: CARBIDOPA\LEVODOPA
     Indication: Product used for unknown indication
     Dosage: 25-100MG
     Route: 048
  5. PRAMIPEXOLE [Concomitant]
     Active Substance: PRAMIPEXOLE
     Indication: Product used for unknown indication
     Dosage: 0.25MG
     Route: 048
  6. LEVOTHYROXINE [Concomitant]
     Active Substance: LEVOTHYROXINE
     Indication: Thyroid disorder
     Dosage: 50MCG
     Route: 048
  7. KLONOPIN [Concomitant]
     Active Substance: CLONAZEPAM
     Indication: Sleep disorder therapy
     Dosage: 0.5MG
     Route: 048
  8. ASPIRIN [Concomitant]
     Active Substance: ASPIRIN
     Indication: Product used for unknown indication
     Dosage: 81MG
     Route: 048
  9. MIDODRINE [Concomitant]
     Active Substance: MIDODRINE
     Indication: Cardiac disorder
     Dosage: 5MG
     Route: 048
  10. LOPRESSOR [Concomitant]
     Active Substance: METOPROLOL TARTRATE
     Indication: Cardiac disorder
  11. CARBIDOPA\LEVODOPA [Concomitant]
     Active Substance: CARBIDOPA\LEVODOPA
     Indication: Parkinson^s disease
     Dosage: 25-100MG
     Route: 048
  12. PROLIA [Concomitant]
     Active Substance: DENOSUMAB
     Indication: Osteoporosis
  13. VITAMIN D [Concomitant]
     Active Substance: VITAMIN D NOS
     Indication: Supplementation therapy
  14. MIRAPEX [Concomitant]
     Active Substance: PRAMIPEXOLE DIHYDROCHLORIDE
     Indication: Parkinson^s disease
  15. PRILOSEC [Concomitant]
     Active Substance: OMEPRAZOLE MAGNESIUM
     Indication: Gastric disorder
  16. PFIZER-BIONTECH COVID-19 VACCINE [Concomitant]
     Active Substance: TOZINAMERAN
     Indication: COVID-19 immunisation
     Route: 030
     Dates: start: 20210209, end: 20210209
  17. PFIZER-BIONTECH COVID-19 VACCINE [Concomitant]
     Active Substance: TOZINAMERAN
     Route: 030
     Dates: start: 20210309, end: 20210309
  18. PFIZER-BIONTECH COVID-19 VACCINE [Concomitant]
     Active Substance: TOZINAMERAN
     Route: 030
     Dates: start: 20211104, end: 20211104
  19. VITAMIN D3 [Concomitant]
     Active Substance: CHOLECALCIFEROL
     Indication: Product used for unknown indication
     Route: 048

REACTIONS (12)
  - Rehabilitation therapy [Unknown]
  - Urinary tract obstruction [Recovered/Resolved]
  - Nephrolithiasis [Recovered/Resolved]
  - Infection [Recovering/Resolving]
  - Kidney infection [Unknown]
  - Dyspnoea [Recovered/Resolved]
  - Unevaluable event [Recovered/Resolved]
  - Living in residential institution [Unknown]
  - Hospitalisation [Unknown]
  - Escherichia infection [Recovered/Resolved]
  - Ulcer [Recovering/Resolving]
  - Gait disturbance [Not Recovered/Not Resolved]

NARRATIVE: CASE EVENT DATE: 20210101
